FAERS Safety Report 13872653 (Version 8)
Quarter: 2018Q2

REPORT INFORMATION
  Report Type: Report from Study
  Country: AU (occurrence: AU)
  Receive Date: 20170816
  Receipt Date: 20180628
  Transmission Date: 20180711
  Serious: Yes (Hospitalization, Other)
  Sender: FDA-Public Use
  Company Number: AU-SA-2017SA120140

PATIENT
  Age: 31 Year
  Sex: Male

DRUGS (3)
  1. KEPPRA [Concomitant]
     Active Substance: LEVETIRACETAM
     Indication: MULTIPLE SCLEROSIS
     Dosage: 500 MG,UNK
     Route: 048
     Dates: start: 20140327
  2. ALEMTUZUMAB [Suspect]
     Active Substance: ALEMTUZUMAB
     Indication: MULTIPLE SCLEROSIS RELAPSE
     Dosage: 12 MG,QD
     Route: 041
     Dates: start: 20170515, end: 20170519
  3. RANITIDINE. [Concomitant]
     Active Substance: RANITIDINE
     Dosage: 150 MG,UNK
     Route: 048
     Dates: start: 2017

REACTIONS (5)
  - Pyrexia [Recovered/Resolved]
  - Skin exfoliation [Unknown]
  - Neutropenia [Recovering/Resolving]
  - Viral infection [Recovering/Resolving]
  - Oral fungal infection [Recovering/Resolving]

NARRATIVE: CASE EVENT DATE: 20170519
